FAERS Safety Report 8966793 (Version 3)
Quarter: 2013Q1

REPORT INFORMATION
  Report Type: Spontaneous
  Country: JP (occurrence: JP)
  Receive Date: 20121217
  Receipt Date: 20130110
  Transmission Date: 20140127
  Serious: Yes (Life-Threatening, Other)
  Sender: FDA-Public Use
  Company Number: JP-PFIZER INC-2012317099

PATIENT
  Age: 82 Year
  Sex: Female

DRUGS (5)
  1. CADUET [Suspect]
     Indication: HYPERTENSION
     Dosage: 1 DF, 1X/DAY
     Route: 048
  2. CADUET [Suspect]
     Indication: HYPERLIPIDAEMIA
  3. BONOTEO [Suspect]
     Indication: OSTEOPOROSIS
     Dosage: 50 MG, ONCE DAILY
     Route: 048
     Dates: start: 20121120, end: 20121121
  4. INFLUENZA VACCINE [Suspect]
     Indication: ANTIVIRAL PROPHYLAXIS
     Dosage: 0.5 ML, DAILY
     Route: 058
     Dates: start: 20121120, end: 20121120
  5. MOHRUS [Concomitant]
     Indication: BACK PAIN
     Dosage: 1 DF, 1X/DAY
     Route: 062

REACTIONS (3)
  - Subdural haematoma [Recovering/Resolving]
  - Dizziness [Unknown]
  - Fall [Unknown]
